FAERS Safety Report 7875528-2 (Version None)
Quarter: 2011Q4

REPORT INFORMATION
  Report Type: 
  Country: None (occurrence: None)
  Receive Date: 20111031
  Receipt Date: 20111027
  Transmission Date: 20120403
  Serious: Yes (Death, Hospitalization, Other)
  Sender: FDA-Public Use
  Company Number: PHHY2011FI57616

PATIENT
  Sex: Male

DRUGS (7)
  1. DIAPAM [Concomitant]
     Dosage: UNK UKN, PRN
  2. CLOZAPINE [Suspect]
     Indication: SCHIZOPHRENIA
     Dosage: 250 MG, DAILY
     Dates: start: 19930101, end: 20110530
  3. VALPROATE SODIUM [Concomitant]
     Indication: SCHIZOPHRENIA
     Dosage: 1000 MG, TID
  4. VALPROATE SODIUM [Concomitant]
     Indication: EPILEPSY
     Dosage: UNK UKN, PRN
  5. OMEPRAZOLE [Concomitant]
     Indication: DUODENAL ULCER
     Dosage: 40 MG
  6. HALOPERIDOL [Concomitant]
     Indication: SCHIZOPHRENIA
     Dosage: 4 MG, DOSE OF TWO TABLETS PER DAY
  7. OLANZAPINE [Concomitant]

REACTIONS (5)
  - NEUTROPHIL COUNT DECREASED [None]
  - OVERGROWTH BACTERIAL [None]
  - PNEUMONIA [None]
  - SOMATISATION DISORDER [None]
  - PYELONEPHRITIS [None]
